FAERS Safety Report 24440701 (Version 2)
Quarter: 2024Q4

REPORT INFORMATION
  Report Type: Report from Study
  Country: UY (occurrence: UY)
  Receive Date: 20241016
  Receipt Date: 20241017
  Transmission Date: 20250114
  Serious: No
  Sender: ROCHE
  Company Number: UY-ROCHE-3281705

PATIENT
  Age: 16 Year
  Sex: Male
  Weight: 93.5 kg

DRUGS (15)
  1. HEMLIBRA [Suspect]
     Active Substance: EMICIZUMAB-KXWH
     Indication: Factor VIII deficiency
     Dosage: HAD SCHEDULED PROPHYLACTIC DOSES ON 09-AUG-2022, 16-AUG-2022, 23-AUG-2022
     Route: 058
     Dates: start: 20220802, end: 20220823
  2. HEMLIBRA [Suspect]
     Active Substance: EMICIZUMAB-KXWH
     Dosage: HAD SCHEDULED PROPHYLACTIC DOSES ON 30-AUG-2022, 27-SEP-2022, 25-OCT-2022, 22-NOV-2022, 20-DEC-2022,
     Route: 058
     Dates: start: 20220830
  3. HEMLIBRA [Suspect]
     Active Substance: EMICIZUMAB-KXWH
     Route: 058
  4. HEMLIBRA [Suspect]
     Active Substance: EMICIZUMAB-KXWH
     Route: 058
  5. HEMLIBRA [Suspect]
     Active Substance: EMICIZUMAB-KXWH
     Route: 058
  6. HEMLIBRA [Suspect]
     Active Substance: EMICIZUMAB-KXWH
     Route: 058
  7. ANTIHEMOPHILIC FACTOR HUMAN [Suspect]
     Active Substance: ANTIHEMOPHILIC FACTOR HUMAN
     Indication: Factor VIII deficiency
     Dosage: HAD AS A TREATMENT FOR BLEED ON 05-MAR-2023.
     Route: 042
     Dates: start: 20110818, end: 20220805
  8. ANTIHEMOPHILIC FACTOR HUMAN [Suspect]
     Active Substance: ANTIHEMOPHILIC FACTOR HUMAN
     Route: 065
     Dates: start: 20230116
  9. CEPHALEXIN [Concomitant]
     Active Substance: CEPHALEXIN
     Indication: Wound infection
     Route: 065
     Dates: start: 202301, end: 202301
  10. AMPICILLIN SODIUM\SULBACTAM SODIUM [Concomitant]
     Active Substance: AMPICILLIN SODIUM\SULBACTAM SODIUM
     Indication: Wound infection
     Route: 065
     Dates: start: 202301, end: 202301
  11. AMPICILLIN SODIUM\SULBACTAM SODIUM [Concomitant]
     Active Substance: AMPICILLIN SODIUM\SULBACTAM SODIUM
     Indication: Wound infection
  12. TRANEXAMIC ACID [Concomitant]
     Active Substance: TRANEXAMIC ACID
     Indication: Wound infection
     Dosage: FREQUENCY TEXT:PRN
     Dates: end: 202301
  13. ANTIHEMOPHILIC FACTOR HUMAN [Concomitant]
     Active Substance: ANTIHEMOPHILIC FACTOR HUMAN
     Indication: Limb injury
     Route: 042
     Dates: start: 20220305
  14. ANTIHEMOPHILIC FACTOR HUMAN [Concomitant]
     Active Substance: ANTIHEMOPHILIC FACTOR HUMAN
     Indication: Joint injury
     Route: 042
     Dates: start: 20220305, end: 20230414
  15. BACITRACIN [Concomitant]
     Active Substance: BACITRACIN
     Indication: Limb injury
     Route: 061
     Dates: start: 20230127, end: 202301

REACTIONS (3)
  - Wound infection [Recovered/Resolved]
  - Puncture site erythema [Recovered/Resolved]
  - Injection site reaction [Recovered/Resolved]

NARRATIVE: CASE EVENT DATE: 20220927
